FAERS Safety Report 8234080-2 (Version None)
Quarter: 2012Q1

REPORT INFORMATION
  Report Type: 
  Country: None (occurrence: None)
  Receive Date: 20120326
  Receipt Date: 20120326
  Transmission Date: 20120608
  Serious: Yes (Life-Threatening)
  Sender: FDA-Public Use
  Company Number: None

PATIENT
  Sex: Male
  Weight: 91.625 kg

DRUGS (1)
  1. TRAMADOL HCL [Suspect]
     Indication: BACK PAIN
     Dosage: 50.0 MG
     Route: 007
     Dates: start: 20080601, end: 20120110

REACTIONS (8)
  - CONSTIPATION [None]
  - GASTROINTESTINAL DISORDER [None]
  - ABDOMINAL DISTENSION [None]
  - DYSPNOEA [None]
  - WITHDRAWAL SYNDROME [None]
  - SCREAMING [None]
  - FLATULENCE [None]
  - REGURGITATION [None]
